FAERS Safety Report 9250867 (Version 3)
Quarter: 2013Q3

REPORT INFORMATION
  Report Type: Report from Study
  Country: BR (occurrence: BR)
  Receive Date: 20130424
  Receipt Date: 20130909
  Transmission Date: 20140515
  Serious: Yes (Death)
  Sender: FDA-Public Use
  Company Number: PHHY2013BR038812

PATIENT
  Sex: Female

DRUGS (4)
  1. GALVUS MET COMBIPACK [Suspect]
     Indication: DIABETES MELLITUS
     Dosage: 1 DF (500MG METF/50MG VILD), BID (IN THE MORNING AND AT NIGHT)
     Route: 048
  2. FORASEQ [Suspect]
     Indication: DYSPNOEA
     Dosage: 1 DF (12UG FORM/400UG BUDE), BID (IN THE MORNING AND AT NIGHT)
  3. FORASEQ [Suspect]
     Dosage: 1 DF (12UG FORM/400UG BUDE), BID (IN THE MORNING AND AT NIGHT)
  4. DIOVAN HCT [Suspect]
     Indication: HYPERTENSION
     Dosage: 1 DF (320MG VALS/25MG AMLO), QD

REACTIONS (5)
  - Fibrosis [Fatal]
  - Condition aggravated [Fatal]
  - Pneumonia [Fatal]
  - Dyspnoea [Fatal]
  - Dysphagia [Unknown]
